FAERS Safety Report 9862403 (Version 1)
Quarter: 2014Q1

REPORT INFORMATION
  Report Type: Spontaneous
  Country: SG (occurrence: SG)
  Receive Date: 20140203
  Receipt Date: 20140203
  Transmission Date: 20141002
  Serious: Yes (Other)
  Sender: FDA-Public Use
  Company Number: SG-JNJFOC-20140115379

PATIENT
  Age: 69 Year
  Sex: Female

DRUGS (5)
  1. DOXORUBICIN [Suspect]
     Indication: LYMPHOMA
     Dosage: 4 CYCLES
     Route: 042
  2. RITUXIMAB [Suspect]
     Indication: LYMPHOMA
     Dosage: 4 CYCLES
     Route: 065
  3. CYCLOPHOSPHAMIDE [Suspect]
     Indication: LYMPHOMA
     Dosage: 4 CYCLES
     Route: 065
  4. VINCRISTINE [Suspect]
     Indication: LYMPHOMA
     Dosage: 4 CYCLES
     Route: 065
  5. PREDNISONE [Suspect]
     Indication: LYMPHOMA
     Dosage: 4 CYCLES
     Route: 065

REACTIONS (1)
  - Pneumonia cytomegaloviral [Unknown]
